FAERS Safety Report 14422848 (Version 1)
Quarter: 2018Q1

REPORT INFORMATION
  Report Type: Spontaneous
  Country: US (occurrence: US)
  Receive Date: 20180123
  Receipt Date: 20180123
  Transmission Date: 20180509
  Serious: No
  Sender: FDA-Public Use
  Company Number: US-ENDO PHARMACEUTICALS INC-2017-000444

PATIENT
  Sex: Female
  Weight: 57.6 kg

DRUGS (15)
  1. LIDODERM [Suspect]
     Active Substance: LIDOCAINE
     Indication: NEURALGIA
  2. LIDODERM [Suspect]
     Active Substance: LIDOCAINE
     Indication: SOFT TISSUE DISORDER
  3. ELIQUIS [Concomitant]
     Active Substance: APIXABAN
     Indication: THROMBOSIS
  4. LIDODERM [Suspect]
     Active Substance: LIDOCAINE
     Indication: BACK PAIN
     Dosage: 3 PATCH, QHS (90 PER MONTH)
     Route: 065
     Dates: start: 2002
  5. PERCOCET [Suspect]
     Active Substance: ACETAMINOPHEN\OXYCODONE HYDROCHLORIDE
     Indication: PAIN
     Dosage: 1.5 DF, PRN
     Route: 065
     Dates: start: 2002
  6. LIDOCAINE. [Suspect]
     Active Substance: LIDOCAINE
     Indication: BACK PAIN
     Dosage: 3 PATCH, QHS (90 PER MONTH)
     Route: 065
     Dates: start: 2002
  7. EFFEXOR [Concomitant]
     Active Substance: VENLAFAXINE HYDROCHLORIDE
     Indication: ANTIDEPRESSANT THERAPY
  8. LIPITOR [Concomitant]
     Active Substance: ATORVASTATIN CALCIUM
     Indication: BLOOD CHOLESTEROL ABNORMAL
  9. LIDOCAINE. [Suspect]
     Active Substance: LIDOCAINE
     Indication: SCIATICA
  10. LIDODERM [Suspect]
     Active Substance: LIDOCAINE
     Indication: SCIATICA
  11. LIDOCAINE. [Suspect]
     Active Substance: LIDOCAINE
     Indication: SOFT TISSUE DISORDER
  12. CLONAZEPAM. [Concomitant]
     Active Substance: CLONAZEPAM
     Indication: ANXIETY
  13. LIDODERM [Suspect]
     Active Substance: LIDOCAINE
     Indication: INSOMNIA
  14. LIDOCAINE. [Suspect]
     Active Substance: LIDOCAINE
     Indication: INSOMNIA
  15. LIDOCAINE. [Suspect]
     Active Substance: LIDOCAINE
     Indication: NEURALGIA

REACTIONS (2)
  - Feeling abnormal [Unknown]
  - Tremor [Unknown]
